FAERS Safety Report 7689504-6 (Version None)
Quarter: 2011Q3

REPORT INFORMATION
  Report Type: 
  Country: None (occurrence: None)
  Receive Date: 20110817
  Receipt Date: 20110517
  Transmission Date: 20111222
  Serious: No
  Sender: FDA-Public Use
  Company Number: US-TYCO HEALTHCARE/MALLINCKRODT-T201100989

PATIENT

DRUGS (14)
  1. FENTANYL-100 [Suspect]
     Indication: ARTHRALGIA
     Dosage: 75 MCG/HR Q72 HOURS
     Route: 062
     Dates: start: 20110401
  2. DURAGESIC-100 [Concomitant]
     Indication: ARTHRALGIA
     Dosage: 20 UG/HR
  3. STOOL SOFTENER [Concomitant]
  4. SPIRONOLACTONE [Concomitant]
     Dosage: 25 MG, UNK
  5. OCUVITE                            /01053801/ [Concomitant]
     Dosage: UNK
  6. VITAMIN B12                        /00056201/ [Concomitant]
  7. FENTANYL-100 [Suspect]
     Indication: FIBROMYALGIA
  8. POTASSIUM [Concomitant]
     Dosage: UNK
  9. MULTIVITAMIN [Concomitant]
  10. TORSEMIDE [Concomitant]
     Dosage: 20 MG QAM, 10 MG QPM
  11. VITAMIN D [Concomitant]
     Dosage: 400 UNK, UNK
  12. DURAGESIC-100 [Concomitant]
     Indication: FIBROMYALGIA
     Dosage: 75 UG/HR
  13. PRILOSEC [Concomitant]
     Dosage: UNK
  14. VIT BIZ [Concomitant]
     Dosage: 500 UNK, UNK

REACTIONS (2)
  - CHILLS [None]
  - DRUG INEFFECTIVE [None]
